FAERS Safety Report 20709760 (Version 1)
Quarter: 2022Q2

REPORT INFORMATION
  Report Type: Spontaneous
  Country: AT (occurrence: AT)
  Receive Date: 20220414
  Receipt Date: 20220414
  Transmission Date: 20220720
  Serious: Yes (Hospitalization, Other)
  Sender: FDA-Public Use
  Company Number: AT-ELI_LILLY_AND_COMPANY-AT202204002217

PATIENT
  Age: 70 Year
  Sex: Female

DRUGS (1)
  1. OLUMIANT [Suspect]
     Active Substance: BARICITINIB
     Indication: Polyarthritis
     Dosage: 4 MG, UNKNOWN
     Route: 065
     Dates: start: 201704

REACTIONS (22)
  - Syncope [Unknown]
  - Vomiting [Unknown]
  - Nausea [Unknown]
  - Abdominal pain upper [Unknown]
  - Ageusia [Unknown]
  - Tongue fungal infection [Unknown]
  - Influenza like illness [Unknown]
  - Gingivitis [Unknown]
  - Aphonia [Unknown]
  - Dyspnoea [Unknown]
  - Flatulence [Unknown]
  - Cough [Unknown]
  - Hypersensitivity [Unknown]
  - Bacterial infection [Unknown]
  - Hypertension [Unknown]
  - Pyrexia [Unknown]
  - Dry skin [Unknown]
  - Viral infection [Unknown]
  - Fatigue [Unknown]
  - Oral herpes [Unknown]
  - Genital herpes [Unknown]
  - Headache [Unknown]

NARRATIVE: CASE EVENT DATE: 20211101
